FAERS Safety Report 23636245 (Version 1)
Quarter: 2024Q1

REPORT INFORMATION
  Report Type: Report from Study
  Country: BR (occurrence: BR)
  Receive Date: 20240315
  Receipt Date: 20240315
  Transmission Date: 20240410
  Serious: Yes (Other)
  Sender: FDA-Public Use
  Company Number: BR-CELLTRION INC.-2024BR005046

PATIENT

DRUGS (6)
  1. INFLIXIMAB [Suspect]
     Active Substance: INFLIXIMAB
     Indication: Crohn^s disease
     Dosage: 5 AMPOULES EVERY 8 WEEKS
     Route: 042
     Dates: start: 20221006
  2. INFLIXIMAB [Suspect]
     Active Substance: INFLIXIMAB
     Dosage: LAST INFUSION WAS BETWEEN THE END OF DECEMBER AND THE BEGINNING OF JANUARY
  3. AZATHIOPRINE [Concomitant]
     Active Substance: AZATHIOPRINE
     Indication: Crohn^s disease
     Dosage: 3 PILLS A DAY (START DATE: 14 YEARS)
     Route: 048
     Dates: end: 202312
  4. PREGABALIN [Concomitant]
     Active Substance: PREGABALIN
     Indication: Fibromyalgia
     Dosage: 2 PILLS A DAY (START DATE: 10 YEARS; STOP DATE: 3 MONTHS AGO)
     Route: 048
  5. AMITRIPTYLINE [Concomitant]
     Active Substance: AMITRIPTYLINE
     Indication: Antidepressant therapy
     Dosage: 1 PILL A DAY
     Route: 048
  6. CLONAZEPAM [Concomitant]
     Active Substance: CLONAZEPAM
     Indication: Anxiety
     Dosage: HALF PILL A DAY
     Route: 048

REACTIONS (6)
  - Crohn^s disease [Unknown]
  - Aphonia [Recovering/Resolving]
  - Ill-defined disorder [Recovering/Resolving]
  - Thermal burn [Recovering/Resolving]
  - Erythema [Recovering/Resolving]
  - Intentional dose omission [Recovering/Resolving]

NARRATIVE: CASE EVENT DATE: 20240212
